FAERS Safety Report 6512366-7 (Version None)
Quarter: 2009Q4

REPORT INFORMATION
  Report Type: 
  Country: None (occurrence: None)
  Receive Date: 20091222
  Receipt Date: 20090709
  Transmission Date: 20100525
  Serious: No
  Sender: FDA-Public Use
  Company Number: US-ASTRAZENECA-2009UW19295

PATIENT
  Sex: Female
  Weight: 80.7 kg

DRUGS (5)
  1. CRESTOR [Suspect]
     Route: 048
     Dates: start: 20090505, end: 20090615
  2. PLAVIX [Concomitant]
  3. ATACAND [Concomitant]
  4. ASPIRIN [Concomitant]
  5. PREMARIN [Concomitant]

REACTIONS (3)
  - BLOOD PRESSURE FLUCTUATION [None]
  - DIZZINESS [None]
  - MOOD ALTERED [None]
